FAERS Safety Report 11676201 (Version 2)
Quarter: 2015Q4

REPORT INFORMATION
  Report Type: Spontaneous
  Country: US (occurrence: US)
  Receive Date: 20151027
  Receipt Date: 20151110
  Transmission Date: 20160304
  Serious: No
  Sender: FDA-Public Use
  Company Number: US-ELI_LILLY_AND_COMPANY-US201006001293

PATIENT
  Sex: Female

DRUGS (6)
  1. LEVAQUIN [Concomitant]
     Active Substance: LEVOFLOXACIN
     Dosage: 750 MG, UNKNOWN
  2. FORTEO [Suspect]
     Active Substance: TERIPARATIDE
     Dosage: 20 UG, QD
     Route: 065
  3. FORTEO [Suspect]
     Active Substance: TERIPARATIDE
     Dosage: 20 UG, DAILY (1/D)
     Route: 065
  4. FORTEO [Suspect]
     Active Substance: TERIPARATIDE
     Dosage: 20 UG, QD
     Route: 065
  5. ANESTHETICS [Concomitant]
     Active Substance: UNSPECIFIED INGREDIENT
     Indication: CATARACT OPERATION
  6. FORTEO [Suspect]
     Active Substance: TERIPARATIDE
     Indication: OSTEOPOROSIS
     Dosage: 20 UG, DAILY (1/D)
     Dates: start: 2009

REACTIONS (15)
  - Flatulence [Not Recovered/Not Resolved]
  - Nasopharyngitis [Unknown]
  - Cataract [Recovered/Resolved]
  - Herpes zoster [Unknown]
  - Precancerous skin lesion [Unknown]
  - Bronchitis [Unknown]
  - Vomiting [Unknown]
  - Insomnia [Unknown]
  - Heart rate increased [Unknown]
  - Blood glucose decreased [Unknown]
  - Blood electrolytes decreased [Unknown]
  - Dizziness [Unknown]
  - Pain in extremity [Not Recovered/Not Resolved]
  - Bone disorder [Not Recovered/Not Resolved]
  - Abdominal discomfort [Unknown]
